FAERS Safety Report 6916053-2 (Version None)
Quarter: 2010Q3

REPORT INFORMATION
  Report Type: 
  Country: None (occurrence: None)
  Receive Date: 20100810
  Receipt Date: 20100729
  Transmission Date: 20110219
  Serious: Yes (Other)
  Sender: FDA-Public Use
  Company Number: ZA-SANOFI-AVENTIS-2010SA044459

PATIENT
  Sex: Male

DRUGS (7)
  1. TAXOTERE [Suspect]
     Indication: PROSTATE CANCER
  2. TAXOTERE [Suspect]
     Dates: start: 20100623, end: 20100623
  3. ZOLADEX [Concomitant]
  4. ZOMETA [Concomitant]
  5. NEXIUM [Concomitant]
  6. MUCAINE [Concomitant]
  7. NEUPOGEN [Concomitant]
     Dosage: THE PATIENT RECEIVED NEUPOGEN FROM  DAY 9 TO DAY 12 OF CYCLE 4 (DOCETAXEL)
     Dates: start: 20100701, end: 20100701

REACTIONS (3)
  - ANAEMIA [None]
  - DYSPNOEA [None]
  - EOSINOPHILIC PNEUMONIA [None]
